FAERS Safety Report 10452436 (Version 1)
Quarter: 2014Q3

REPORT INFORMATION
  Report Type: Spontaneous
  Country: US (occurrence: None)
  Receive Date: 20140912
  Receipt Date: 20140912
  Transmission Date: 20150326
  Serious: No
  Sender: FDA-Public Use
  Company Number: None

PATIENT

DRUGS (2)
  1. LIDOCAINE HCL [Suspect]
     Active Substance: LIDOCAINE HYDROCHLORIDE
     Dosage: INJECTABLE, INECTION, 1%, SINGLE DOSE 2 ML
  2. ONDANSETRON [Suspect]
     Active Substance: ONDANSETRON
     Dosage: INJECTABLE, INJECTION, 5 MG/2ML (2MG/ML) SINGLE DOSE 2 ML

REACTIONS (1)
  - Circumstance or information capable of leading to medication error [None]
